FAERS Safety Report 25517863 (Version 3)
Quarter: 2025Q4

REPORT INFORMATION
  Report Type: Spontaneous
  Country: JP (occurrence: JP)
  Receive Date: 20250704
  Receipt Date: 20251222
  Transmission Date: 20260117
  Serious: Yes (Death, Other)
  Sender: ALEXION PHARMACEUTICALS
  Company Number: JP-ASTRAZENECA-202506JPN024387JP

PATIENT
  Age: 80 Year
  Sex: Female
  Weight: 60 kg

DRUGS (11)
  1. IMFINZI [Suspect]
     Active Substance: DURVALUMAB
     Indication: Hepatocellular carcinoma
     Dosage: UNK
     Dates: start: 20250501, end: 20250530
  2. IMJUDO [Suspect]
     Active Substance: TREMELIMUMAB\TREMELIMUMAB-ACTL
     Indication: Hepatocellular carcinoma
     Dosage: UNK
     Route: 065
     Dates: start: 20250501, end: 20250530
  3. ESOMEPRAZOLE [Concomitant]
     Active Substance: ESOMEPRAZOLE
     Dosage: 20 MILLIGRAM, QD, ONCE IN THE MORNING
     Route: 065
  4. SPIRONOLACTONE [Concomitant]
     Active Substance: SPIRONOLACTONE
     Dosage: 25 MG 0.5 TABLETS IN THE MORNING
     Route: 065
  5. LOSARTAN POTASSIUM [Concomitant]
     Active Substance: LOSARTAN POTASSIUM
     Dosage: 25 MILLIGRAM, QD, 1 TABLET IN THE MORNING
     Route: 065
  6. MOSAPRIDE CITRATE [Concomitant]
     Active Substance: MOSAPRIDE CITRATE
     Dosage: 5 MILLIGRAM, BID, 1 TABLET EACH IN THE MORNING AND EVENING
     Route: 065
  7. URSO [Concomitant]
     Active Substance: URSODIOL
     Dosage: 100 MILLIGRAM, TID, TWO TABLETS IN THE MORNING
     Route: 065
  8. NICORANDIL [Concomitant]
     Active Substance: NICORANDIL
     Dosage: 5 MILLIGRAM, TID, 1 TABLET IN THE MORNING, NOON AND EVENING
  9. ATORVASTATIN [Concomitant]
     Active Substance: ATORVASTATIN
     Dosage: 5 MILLIGRAM, QD, 1 TABLET IN THE EVENING
     Route: 065
  10. ZOLPIDEM [Concomitant]
     Active Substance: ZOLPIDEM TARTRATE
     Dosage: 5 MILLIGRAM, QD, 1 TABLET BEFORE BEDTIME
     Route: 065
  11. AMITIZA [Concomitant]
     Active Substance: LUBIPROSTONE
     Dosage: 24 MICROGRAM, QD, 1 CAPSULE EACH IN THE MORNING AND EVENING
     Route: 065

REACTIONS (3)
  - Neoplasm progression [Fatal]
  - Jaundice [Fatal]
  - Hepatorenal syndrome [Unknown]

NARRATIVE: CASE EVENT DATE: 20250530
